FAERS Safety Report 9954791 (Version 1)
Quarter: 2014Q1

REPORT INFORMATION
  Report Type: Report from Study
  Country: US (occurrence: US)
  Receive Date: 20140304
  Receipt Date: 20140304
  Transmission Date: 20141002
  Serious: No
  Sender: FDA-Public Use
  Company Number: US-ABBVIE-13P-163-1083923-00

PATIENT
  Age: 85 Year
  Sex: Female

DRUGS (20)
  1. HUMIRA [Suspect]
     Indication: RHEUMATOID ARTHRITIS
     Dates: start: 20130419
  2. CALCITONIN SALMON [Concomitant]
     Indication: PRODUCT USED FOR UNKNOWN INDICATION
  3. OMEPRAZOLE [Concomitant]
     Indication: GASTROOESOPHAGEAL REFLUX DISEASE
  4. TRAMADOL HCL [Concomitant]
     Indication: PAIN
  5. DIOVAN [Concomitant]
     Indication: HYPERTENSION
  6. FOLIC ACID [Concomitant]
     Indication: VITAMIN SUPPLEMENTATION
  7. LOVASTATIN [Concomitant]
     Indication: BLOOD CHOLESTEROL INCREASED
  8. METOPROLOL [Concomitant]
     Indication: PRODUCT USED FOR UNKNOWN INDICATION
  9. FUROSEMIDE [Concomitant]
     Indication: RENAL DISORDER
  10. FUROSEMIDE [Concomitant]
     Indication: BLOOD CREATININE INCREASED
  11. SULFASALAZINE [Concomitant]
     Indication: RHEUMATOID ARTHRITIS
  12. ALLOPURINOL [Concomitant]
     Indication: GOUT
  13. CLOPIDOGREL [Concomitant]
     Indication: ANGIOPATHY
  14. BABY ASPIRIN [Concomitant]
     Indication: CORONARY ARTERY BYPASS
  15. NEPHRO-VITE [Concomitant]
     Indication: RENAL DISORDER
  16. MOVE FREE [Concomitant]
     Indication: ARTHROPATHY
  17. IRON [Concomitant]
     Indication: ANAEMIA
  18. VITAMIN B12 [Concomitant]
     Indication: VITAMIN SUPPLEMENTATION
  19. CITRACAL + D [Concomitant]
     Indication: SUPPLEMENTATION THERAPY
  20. CO Q10 [Concomitant]
     Indication: SUPPLEMENTATION THERAPY

REACTIONS (1)
  - Injection site pain [Recovered/Resolved]
